FAERS Safety Report 6215675-4 (Version None)
Quarter: 2009Q2

REPORT INFORMATION
  Report Type: 
  Country: None (occurrence: None)
  Receive Date: 20090603
  Receipt Date: 20090603
  Transmission Date: 20091009
  Serious: Yes (Life-Threatening, Other)
  Sender: FDA-Public Use
  Company Number: 2009TJ0078FUI

PATIENT
  Age: 70 Year
  Sex: Female

DRUGS (11)
  1. TWINJECT 0.3 [Suspect]
     Indication: ANAPHYLACTIC REACTION
     Dosage: 0.3 MG
     Dates: start: 20090408, end: 20090408
  2. ISOPTIN [Concomitant]
  3. NEURONTIN [Concomitant]
  4. SYNTHROID [Concomitant]
  5. LOMOTIL (DIPEHNOXYLATE AND ATROPINE) [Concomitant]
  6. PANTOLOL (PANTOPRAZOLE) [Concomitant]
  7. PREDNISONE [Concomitant]
  8. NITROSPRAY [Concomitant]
  9. SYMBICORT (BUDESONIDE-FORMOTEROL TURBUHALER) [Concomitant]
  10. IRON SUPPLEMENT [Concomitant]
  11. MAGNESIUM SUPPLEMENT [Concomitant]

REACTIONS (3)
  - DEVICE FAILURE [None]
  - EXPIRED DRUG ADMINISTERED [None]
  - PRODUCT QUALITY ISSUE [None]
